FAERS Safety Report 10056628 (Version 2)
Quarter: 2014Q2

REPORT INFORMATION
  Report Type: Spontaneous
  Country: US (occurrence: US)
  Receive Date: 20140403
  Receipt Date: 20140515
  Transmission Date: 20141212
  Serious: No
  Sender: FDA-Public Use
  Company Number: US-009507513-1404USA001782

PATIENT
  Age: 64 Year
  Sex: Female
  Weight: 80.73 kg

DRUGS (7)
  1. OXYTROL FOR WOMEN [Suspect]
     Indication: BLADDER DISORDER
     Dosage: UNK, UNKNOWN
     Route: 062
     Dates: start: 20140321, end: 20140330
  2. OXYTROL FOR WOMEN [Suspect]
     Dosage: UNK, UNKNOWN
     Route: 062
     Dates: start: 20140321, end: 20140330
  3. NIFEDIPINE [Concomitant]
     Indication: BLOOD PRESSURE ABNORMAL
     Dosage: 60 MG, UNKNOWN
  4. COMBIGAN [Concomitant]
     Indication: GLAUCOMA
     Dosage: UNK, UNKNOWN
  5. LATANOPROST [Concomitant]
     Indication: GLAUCOMA
     Dosage: UNK, UNKNOWN
  6. OMEGA-3 [Concomitant]
     Indication: PRODUCT USED FOR UNKNOWN INDICATION
     Dosage: 950 MG, UNKNOWN
  7. ASCORBIC ACID [Concomitant]
     Indication: PRODUCT USED FOR UNKNOWN INDICATION
     Dosage: 1000 MG, UNKNOWN

REACTIONS (4)
  - Visual impairment [Unknown]
  - Vision blurred [Unknown]
  - Off label use [Unknown]
  - Product adhesion issue [Unknown]
